FAERS Safety Report 4467878-7 (Version None)
Quarter: 2004Q4

REPORT INFORMATION
  Report Type: 
  Country: None (occurrence: None)
  Receive Date: 20041007
  Receipt Date: 20040927
  Transmission Date: 20050328
  Serious: Yes (Congenital Anomaly)
  Sender: FDA-Public Use
  Company Number: GB-BRISTOL-MYERS SQUIBB COMPANY-12712394

PATIENT

DRUGS (3)
  1. DIDANOSINE [Suspect]
     Dosage: ONGOING AT CONCEPTION
     Route: 064
  2. VIRAMUNE [Suspect]
     Dosage: ONGOING AT CONCEPTION
     Route: 064
  3. ZIDOVUDINE [Suspect]
     Dosage: ONGOING AT CONCEPTION
     Route: 064

REACTIONS (2)
  - FOETAL DISORDER [None]
  - PREGNANCY [None]
